FAERS Safety Report 26020204 (Version 1)
Quarter: 2025Q4

REPORT INFORMATION
  Report Type: Spontaneous
  Country: US (occurrence: US)
  Receive Date: 20251110
  Receipt Date: 20251110
  Transmission Date: 20260118
  Serious: No
  Sender: TENSHI KAIZEN PRIVATE LIMITED
  Company Number: US-TENSHI KAIZEN PRIVATE LIMITED-2024TK000128

PATIENT
  Age: 89 Year
  Sex: Male
  Weight: 74.8 kg

DRUGS (4)
  1. LORATADINE [Suspect]
     Active Substance: LORATADINE
     Indication: Hypersensitivity
     Dosage: 3-4 TABLETS DAILY
     Route: 048
     Dates: start: 20241101
  2. LORATADINE [Suspect]
     Active Substance: LORATADINE
     Dosage: 3-4 TABLETS DAILY (2-3 HOURS APART)
     Route: 048
  3. LORATADINE [Suspect]
     Active Substance: LORATADINE
     Dosage: 5-6 TABLETS A DAY
     Route: 048
  4. LORATADINE [Suspect]
     Active Substance: LORATADINE
     Dosage: 2 PILLS AT ONE TIME
     Route: 048
     Dates: end: 20241104

REACTIONS (3)
  - Drug ineffective [Unknown]
  - Intentional product use issue [Unknown]
  - Inappropriate schedule of product administration [Unknown]
